FAERS Safety Report 5896821-9 (Version None)
Quarter: 2008Q3

REPORT INFORMATION
  Report Type: 
  Country: None (occurrence: None)
  Receive Date: 20080924
  Receipt Date: 20071218
  Transmission Date: 20090109
  Serious: Yes (Other)
  Sender: FDA-Public Use
  Company Number: US-ASTRAZENECA-2007UW28701

PATIENT

DRUGS (3)
  1. SEROQUEL [Suspect]
     Route: 048
  2. KLONOPIN [Concomitant]
  3. LITHIUM CARBONATE [Concomitant]

REACTIONS (2)
  - CONVULSION [None]
  - FEELING ABNORMAL [None]
